FAERS Safety Report 6388255-8 (Version None)
Quarter: 2009Q4

REPORT INFORMATION
  Report Type: 
  Country: None (occurrence: None)
  Receive Date: 20091005
  Receipt Date: 20090928
  Transmission Date: 20100525
  Serious: Yes (Other)
  Sender: FDA-Public Use
  Company Number: JP-JNJFOC-20090908721

PATIENT

DRUGS (1)
  1. DUROTEP MT PATCH [Suspect]
     Indication: CANCER PAIN
     Route: 062

REACTIONS (3)
  - ACCOMMODATION DISORDER [None]
  - DYSARTHRIA [None]
  - INADEQUATE ANALGESIA [None]
